FAERS Safety Report 17078081 (Version 10)
Quarter: 2020Q3

REPORT INFORMATION
  Report Type: Spontaneous
  Country: US (occurrence: US)
  Receive Date: 20191126
  Receipt Date: 20200826
  Transmission Date: 20201102
  Serious: Yes (Congenital Anomaly, Other)
  Sender: FDA-Public Use
  Company Number: NVSC2019US046760

PATIENT
  Sex: Male

DRUGS (1)
  1. ZOFRAN [Suspect]
     Active Substance: ONDANSETRON HYDROCHLORIDE
     Indication: FOETAL EXPOSURE DURING PREGNANCY
     Dosage: MOTHER DOSE: 1 DF, Q8H
     Route: 064

REACTIONS (73)
  - Bicuspid aortic valve [Unknown]
  - Heart rate abnormal [Unknown]
  - Dizziness [Unknown]
  - Penile adhesion [Unknown]
  - Dysarthria [Unknown]
  - Right ventricular hypertrophy [Unknown]
  - Sinus arrhythmia [Unknown]
  - Left ventricular dilatation [Unknown]
  - Nasal pruritus [Unknown]
  - Congenital aortic stenosis [Unknown]
  - Hydrocele [Unknown]
  - Aorta hypoplasia [Unknown]
  - Bradycardia [Unknown]
  - Scrotal mass [Unknown]
  - Crying [Unknown]
  - Rhinorrhoea [Unknown]
  - Oropharyngeal pain [Unknown]
  - Foetal exposure during pregnancy [Unknown]
  - Infection [Unknown]
  - Chest pain [Unknown]
  - Vision blurred [Unknown]
  - Dilatation atrial [Unknown]
  - Respiration abnormal [Unknown]
  - Migraine without aura [Unknown]
  - Cough [Unknown]
  - Vomiting [Unknown]
  - Tricuspid valve incompetence [Unknown]
  - Cardiac murmur [Unknown]
  - Autonomic nervous system imbalance [Unknown]
  - Fatigue [Unknown]
  - Scrotal pain [Unknown]
  - Supraventricular extrasystoles [Unknown]
  - Pain in extremity [Unknown]
  - Bursitis [Unknown]
  - Eczema [Unknown]
  - Rhinitis allergic [Unknown]
  - Eye pruritus [Unknown]
  - Coarctation of the aorta [Unknown]
  - Postural orthostatic tachycardia syndrome [Unknown]
  - Aortic restenosis [Unknown]
  - Pyrexia [Unknown]
  - Migraine [Unknown]
  - Headache [Unknown]
  - Hernia [Unknown]
  - Testicular swelling [Unknown]
  - Fall [Unknown]
  - Nausea [Unknown]
  - Asthenia [Unknown]
  - Sever^s disease [Unknown]
  - Aortic valve incompetence [Unknown]
  - Vascular stent stenosis [Unknown]
  - Injury [Unknown]
  - Dizziness exertional [Unknown]
  - Diarrhoea [Unknown]
  - Gait disturbance [Unknown]
  - Muscular weakness [Unknown]
  - Hypoaesthesia [Unknown]
  - Congenital aortic valve incompetence [Unknown]
  - Dyspnoea [Unknown]
  - Bronchitis [Unknown]
  - Urinary tract infection [Unknown]
  - Presyncope [Recovering/Resolving]
  - Joint stiffness [Unknown]
  - Phonophobia [Unknown]
  - Hemiplegic migraine [Unknown]
  - Mitral valve incompetence [Unknown]
  - Osteochondrosis [Unknown]
  - Upper respiratory tract infection [Unknown]
  - Photophobia [Unknown]
  - Bronchial wall thickening [Unknown]
  - Dyspnoea exertional [Unknown]
  - Tenderness [Unknown]
  - Dermatitis atopic [Unknown]
